FAERS Safety Report 8000429-9 (Version None)
Quarter: 2011Q4

REPORT INFORMATION
  Report Type: 
  Country: None (occurrence: None)
  Receive Date: 20111222
  Receipt Date: 20110317
  Transmission Date: 20120403
  Serious: Yes (Other)
  Sender: FDA-Public Use
  Company Number: US-BRISTOL-MYERS SQUIBB COMPANY-15615164

PATIENT
  Age: 72 Year
  Sex: Female
  Weight: 58 kg

DRUGS (6)
  1. MIRALAX [Suspect]
     Indication: BOWEL PREPARATION
     Dosage: STRENGTH 17GM,8OUCE EVERY 10 MINS TOTAL 0F 32 OUNCE
     Route: 048
     Dates: start: 20110203
  2. METOPROLOL TARTRATE [Concomitant]
  3. ACETYLSALICYLIC ACID SRT [Concomitant]
  4. PRAVASTATIN SODIUM [Suspect]
     Indication: MYOCARDIAL INFARCTION
  5. ISOSORBIDE DINITRATE [Concomitant]
  6. WARFARIN SODIUM [Concomitant]

REACTIONS (4)
  - EYELID OEDEMA [None]
  - ANGIOEDEMA [None]
  - RASH [None]
  - PRURITUS [None]
